FAERS Safety Report 5334230-1 (Version None)
Quarter: 2007Q2

REPORT INFORMATION
  Report Type: 
  Country: None (occurrence: None)
  Receive Date: 20070525
  Receipt Date: 20060824
  Transmission Date: 20071010
  Serious: No
  Sender: FDA-Public Use
  Company Number: A0613499A

PATIENT
  Age: 50 Year
  Sex: Female

DRUGS (2)
  1. BACTROBAN [Suspect]
     Dosage: 1APP TWICE PER DAY
     Route: 061
     Dates: start: 20060724, end: 20060724
  2. CLINDAMYCIN [Concomitant]

REACTIONS (5)
  - HYPERSENSITIVITY [None]
  - PRURITUS [None]
  - RASH VESICULAR [None]
  - SUNBURN [None]
  - SWELLING FACE [None]
